FAERS Safety Report 4284513-1 (Version None)
Quarter: 2004Q1

REPORT INFORMATION
  Report Type: 
  Country: None (occurrence: None)
  Receive Date: 20040130
  Receipt Date: 20040130
  Transmission Date: 20041129
  Serious: Yes (Death, Hospitalization, Other)
  Sender: FDA-Public Use
  Company Number: None

PATIENT
  Age: 73 Year
  Sex: Male

DRUGS (2)
  1. CASODEX [Suspect]
     Indication: CARCINOMA
  2. CASODEX [Suspect]
     Indication: PROPHYLAXIS

REACTIONS (1)
  - UNEVALUABLE EVENT [None]
